FAERS Safety Report 10086663 (Version 1)
Quarter: 2014Q2

REPORT INFORMATION
  Report Type: Spontaneous
  Country: JP (occurrence: JP)
  Receive Date: 20140418
  Receipt Date: 20140418
  Transmission Date: 20141212
  Serious: Yes (Death)
  Sender: FDA-Public Use
  Company Number: JP-MALLINCKRODT-T201401891

PATIENT
  Age: 70 Year
  Sex: Male

DRUGS (15)
  1. METHADONE [Suspect]
     Indication: CANCER PAIN
     Dosage: 5 MG (15 MG DAILY DOSE)
     Route: 048
     Dates: start: 20140122, end: 20140128
  2. METHADONE [Suspect]
     Dosage: 10 MG (20 MG DAILY DOSE)
     Route: 048
     Dates: start: 20140129, end: 20140203
  3. METHADONE [Suspect]
     Dosage: 5 MG (15 MG DAILY DOSE)
     Route: 048
     Dates: start: 20140204, end: 20140217
  4. METHADONE [Suspect]
     Dosage: 10 MG (20 MG DAILY DOSE)
     Route: 048
     Dates: start: 20140218, end: 20140328
  5. ESTRACYT [Concomitant]
     Dosage: 626.8 MG, UNK
     Route: 048
     Dates: end: 20140220
  6. FUROSEMIDE [Concomitant]
     Dosage: 20 MG, UNK
     Route: 048
     Dates: end: 20140220
  7. TAKEPRON [Concomitant]
     Dosage: 15 MG, UNK
     Route: 048
  8. DECADRON [Concomitant]
     Dosage: 1 MG, UNK
     Route: 048
  9. PANTOSIN [Concomitant]
     Dosage: 300 MG, UNK
     Route: 048
  10. MAGMITT [Concomitant]
     Dosage: 1000 MG, UNK
     Route: 048
  11. LYRICA [Concomitant]
     Dosage: 150 MG, UNK
     Route: 048
     Dates: end: 20140125
  12. MOBIC [Concomitant]
     Dosage: 10 MG, UNK
     Route: 048
  13. TSUMURA CHOREITO [Concomitant]
     Dosage: 7.5 G, UNK
     Route: 048
     Dates: end: 20140220
  14. OXINORM [Concomitant]
     Dosage: 5 MG, PRN
     Route: 048
     Dates: start: 20140121
  15. OXYCONTIN [Concomitant]
     Dosage: 40 MG, UNK
     Route: 048
     Dates: end: 20140127

REACTIONS (2)
  - Prostate cancer [Fatal]
  - Somnolence [Recovering/Resolving]
